FAERS Safety Report 5790612-5 (Version None)
Quarter: 2008Q2

REPORT INFORMATION
  Report Type: 
  Country: None (occurrence: None)
  Receive Date: 20080626
  Receipt Date: 20080502
  Transmission Date: 20081010
  Serious: No
  Sender: FDA-Public Use
  Company Number: A0725953A

PATIENT
  Age: 45 Year
  Sex: Male

DRUGS (1)
  1. ALLI [Suspect]
     Indication: DRUG USE FOR UNKNOWN INDICATION

REACTIONS (5)
  - BLOOD IRON DECREASED [None]
  - COLONOSCOPY [None]
  - DIZZINESS [None]
  - HEADACHE [None]
  - NONSPECIFIC REACTION [None]
